FAERS Safety Report 20742070 (Version 2)
Quarter: 2022Q2

REPORT INFORMATION
  Report Type: Report from Study
  Country: IT (occurrence: IT)
  Receive Date: 20220423
  Receipt Date: 20220624
  Transmission Date: 20220721
  Serious: Yes (Life-Threatening)
  Sender: FDA-Public Use
  Company Number: None

PATIENT
  Age: 45 Year
  Sex: Male

DRUGS (2)
  1. QUETIAPINE FUMARATE [Suspect]
     Active Substance: QUETIAPINE FUMARATE
     Indication: Product used for unknown indication
     Dosage: 7800 MG
     Route: 048
     Dates: start: 20220307, end: 20220307
  2. PATROL [Suspect]
     Active Substance: ACETAMINOPHEN\TRAMADOL HYDROCHLORIDE
     Indication: Product used for unknown indication
     Dosage: FORM STRENGTH 37.5 MG / 325 MG, UNIT DOSE: 10 DF
     Route: 048
     Dates: start: 20220307, end: 20220307

REACTIONS (4)
  - Unresponsive to stimuli [Recovered/Resolved]
  - Sopor [Recovered/Resolved]
  - Coma [Recovered/Resolved]
  - Drug abuse [Recovered/Resolved]

NARRATIVE: CASE EVENT DATE: 20220307
